FAERS Safety Report 24790021 (Version 2)
Quarter: 2025Q1

REPORT INFORMATION
  Report Type: Spontaneous
  Country: US (occurrence: US)
  Receive Date: 20241230
  Receipt Date: 20250103
  Transmission Date: 20250409
  Serious: No
  Sender: ROCHE
  Company Number: US-ROCHE-10000169050

PATIENT
  Age: 16 Year
  Sex: Female

DRUGS (2)
  1. XOLAIR PFS [Suspect]
     Active Substance: OMALIZUMAB
     Indication: Idiopathic urticaria
     Dosage: MORE DOSAGE INFORMATION: DEFECTIVE QUANTITY AS 1 AND THERAPY STATUS WAS ONGOING
     Route: 058
  2. XOLAIR PFS [Suspect]
     Active Substance: OMALIZUMAB

REACTIONS (7)
  - Product dose omission issue [Unknown]
  - Device issue [Unknown]
  - No adverse event [Unknown]
  - Syringe issue [Unknown]
  - Needle issue [Unknown]
  - Product physical issue [Unknown]
  - Product container issue [Unknown]
